FAERS Safety Report 8266897-2 (Version None)
Quarter: 2012Q2

REPORT INFORMATION
  Report Type: 
  Country: None (occurrence: None)
  Receive Date: 20120404
  Receipt Date: 20120404
  Transmission Date: 20120825
  Serious: Yes (Hospitalization, Other)
  Sender: FDA-Public Use
  Company Number: None

PATIENT
  Sex: Female
  Weight: 68.0396 kg

DRUGS (2)
  1. BENAZEPRIL HYDROCHLORIDE [Suspect]
     Indication: BLOOD PRESSURE
     Dosage: 1 TABLET DAILY
     Dates: start: 20120229
  2. BENAZEPRIL HYDROCHLORIDE [Suspect]
     Indication: BLOOD PRESSURE
     Dosage: 1 TABLET DAILY
     Dates: start: 20120206

REACTIONS (3)
  - DYSPNOEA [None]
  - CHEST PAIN [None]
  - COUGH [None]
